FAERS Safety Report 9181827 (Version 1)
Quarter: 2013Q1

REPORT INFORMATION
  Report Type: Spontaneous
  Country: FR (occurrence: FR)
  Receive Date: 20130322
  Receipt Date: 20130322
  Transmission Date: 20140127
  Serious: Yes (Hospitalization)
  Sender: FDA-Public Use
  Company Number: FR-EISAI INC-E2090-02045-SPO-FR

PATIENT
  Age: 12 None
  Sex: Male
  Weight: 48 kg

DRUGS (6)
  1. ZONEGRAN [Suspect]
     Indication: PRODUCT USED FOR UNKNOWN INDICATION
     Dosage: UNKNOWN
     Route: 048
     Dates: start: 2011, end: 2011
  2. ZONEGRAN [Suspect]
     Dosage: 250 MG
     Route: 048
     Dates: start: 2011, end: 2011
  3. ZONEGRAN [Suspect]
     Dosage: 150 MG
     Route: 048
     Dates: start: 2011
  4. VIMPAT [Concomitant]
     Indication: PRODUCT USED FOR UNKNOWN INDICATION
     Dosage: UNKNOWN
     Dates: end: 2011
  5. VIMPAT [Concomitant]
     Dosage: 150 MG/DAY
     Dates: start: 2011
  6. URBANYL [Concomitant]
     Indication: PRODUCT USED FOR UNKNOWN INDICATION
     Dosage: UNKNOWN
     Route: 048

REACTIONS (5)
  - Lung abscess [Recovered/Resolved]
  - Haemoptysis [Recovered/Resolved]
  - Weight decreased [Recovered/Resolved]
  - Decreased appetite [Recovered/Resolved]
  - Off label use [Recovered/Resolved]
